FAERS Safety Report 4421539-9 (Version None)
Quarter: 2004Q3

REPORT INFORMATION
  Report Type: 
  Country: None (occurrence: None)
  Receive Date: 20040804
  Receipt Date: 20040723
  Transmission Date: 20050211
  Serious: Yes (Death)
  Sender: FDA-Public Use
  Company Number: US-JNJFOC-20040706479

PATIENT
  Age: 81 Year
  Sex: Male

DRUGS (7)
  1. INFLIXIMAB (INFLIXIMAB, RECOMBINANT) LYOPHILIZED POWDER [Suspect]
     Indication: RHEUMATOID ARTHRITIS
     Dosage: INTRAVENOUS
     Route: 042
     Dates: start: 20010417, end: 20020514
  2. PREDNISONE [Concomitant]
  3. FLOMAX [Concomitant]
  4. COUMADIN [Concomitant]
  5. ZANTAC (RANITIDINE HYDROPCHLORIDE) [Concomitant]
  6. TYLENOL [Concomitant]
  7. ALEVE [Concomitant]

REACTIONS (1)
  - DEATH [None]
